FAERS Safety Report 24883985 (Version 1)
Quarter: 2025Q1

REPORT INFORMATION
  Report Type: Report from Study
  Country: IN (occurrence: IN)
  Receive Date: 20250124
  Receipt Date: 20250124
  Transmission Date: 20250409
  Serious: Yes (Other)
  Sender: ROCHE
  Company Number: IN-ROCHE-3414070

PATIENT
  Age: 62 Year
  Sex: Female
  Weight: 49.5 kg

DRUGS (1)
  1. PERJETA [Suspect]
     Active Substance: PERTUZUMAB
     Indication: Breast cancer metastatic
     Route: 042

REACTIONS (5)
  - Off label use [Unknown]
  - Metastatic neoplasm [Unknown]
  - Haemoglobin decreased [Unknown]
  - Weight increased [Unknown]
  - Ill-defined disorder [Unknown]
